FAERS Safety Report 17198420 (Version 13)
Quarter: 2021Q4

REPORT INFORMATION
  Report Type: Report from Study
  Country: GB (occurrence: GB)
  Receive Date: 20191225
  Receipt Date: 20211020
  Transmission Date: 20220304
  Serious: Yes (Hospitalization)
  Sender: FDA-Public Use
  Company Number: GB-ROCHE-2504214

PATIENT
  Age: 64 Year
  Sex: Female
  Weight: 55 kg

DRUGS (5)
  1. ATEZOLIZUMAB [Suspect]
     Active Substance: ATEZOLIZUMAB
     Indication: Triple negative breast cancer
     Dosage: ON 20/NOV/2019, SHE RECEIVED MOST RECENT DOSE OF ATEZOLIZUMAB PRIOR TO THE EVENT ONSET.
     Route: 041
     Dates: start: 20191023, end: 20200316
  2. CABOZANTINIB [Suspect]
     Active Substance: CABOZANTINIB
     Indication: Triple negative breast cancer
     Dosage: ON 07/DEC/2019, SHE RECEIVED MOST RECENT DOSE OF CABOZANTINIB PRIOR TO THE EVENT ONSET.
     Route: 048
     Dates: start: 20191023, end: 20200128
  3. CARVEDILOL [Concomitant]
     Active Substance: CARVEDILOL
  4. RAMIPRIL [Concomitant]
     Active Substance: RAMIPRIL
  5. RIVAROXABAN [Concomitant]
     Active Substance: RIVAROXABAN

REACTIONS (2)
  - Transaminases increased [Recovered/Resolved]
  - Hypophysitis [Recovered/Resolved]

NARRATIVE: CASE EVENT DATE: 20191210
